FAERS Safety Report 17362466 (Version 1)
Quarter: 2020Q1

REPORT INFORMATION
  Report Type: Spontaneous
  Country: US (occurrence: US)
  Receive Date: 20200203
  Receipt Date: 20200203
  Transmission Date: 20200409
  Serious: No
  Sender: FDA-Public Use
  Company Number: US-BAUSCH-BL-2020-000690

PATIENT
  Sex: Female

DRUGS (1)
  1. LACRISERT [Suspect]
     Active Substance: HYDROXYPROPYL CELLULOSE
     Indication: DRY EYE
     Dosage: INTRAOCULAR
     Route: 047
     Dates: end: 2019

REACTIONS (6)
  - Dry eye [Not Recovered/Not Resolved]
  - Device dislocation [Unknown]
  - Eye irritation [Not Recovered/Not Resolved]
  - Product supply issue [Unknown]
  - Therapy cessation [Unknown]
  - Eye pain [Not Recovered/Not Resolved]
